FAERS Safety Report 4354158-3 (Version None)
Quarter: 2004Q2

REPORT INFORMATION
  Report Type: 
  Country: None (occurrence: None)
  Receive Date: 20040503
  Receipt Date: 20040419
  Transmission Date: 20050107
  Serious: Yes (Hospitalization, Other)
  Sender: FDA-Public Use
  Company Number: HQ0922404FEB2000

PATIENT
  Age: 34 Year
  Sex: Female

DRUGS (7)
  1. RAPAMUNE [Suspect]
     Indication: PROPHYLAXIS AGAINST TRANSPLANT REJECTION
     Dosage: 4 MG 1 X PER 1 DAY
     Route: 048
     Dates: start: 19981029
  2. CALCIUM CARBONATE (CALCIUM CARBONATE) [Concomitant]
  3. ELTROXIN (LEVOTHYROXINE SODIUM) [Concomitant]
  4. FUROSEMIDE [Concomitant]
  5. INSULIN HUMAN (INSULIN HUMAN) [Concomitant]
  6. TRENTAL [Concomitant]
  7. RANIGAST (RANITIDINE) [Concomitant]

REACTIONS (1)
  - SKIN NECROSIS [None]
